FAERS Safety Report 9162129 (Version 1)
Quarter: 2013Q1

REPORT INFORMATION
  Report Type: Spontaneous
  Country: GR (occurrence: None)
  Receive Date: 20130220
  Receipt Date: 20130220
  Transmission Date: 20140127
  Serious: Yes (Hospitalization)
  Sender: FDA-Public Use
  Company Number: AUR-APL-2013-01433

PATIENT
  Age: 24 Year
  Sex: Male

DRUGS (6)
  1. PIPERACILLIN+TAZOBACTAM [Suspect]
     Indication: PRODUCT USED FOR UNKNOWN INDICATION
     Dosage: (4.5 GM, 3 IN 1 D)
  2. CEFPROZIL [Suspect]
     Indication: PYREXIA
  3. CEFTRIAXONE (CEFTRIAXONE) [Suspect]
     Indication: PRODUCT USED FOR UNKNOWN INDICATION
  4. CLARITHROMYCIN (CLARITHROMYCIN) [Suspect]
     Indication: ANTIBIOTIC THERAPY
     Dosage: (500 MG,2 IN 1 D)
  5. CLINDAMYCIN [Suspect]
     Indication: ANTIBIOTIC THERAPY
     Dosage: (300 MG,3 IN 1 D)
  6. AMIKACIN (AMIKACIN) [Suspect]
     Indication: ANTIBIOTIC THERAPY

REACTIONS (4)
  - Pleural effusion [None]
  - Blood lactate dehydrogenase increased [None]
  - Red blood cell sedimentation rate increased [None]
  - Pyrexia [None]
